FAERS Safety Report 23985494 (Version 2)
Quarter: 2024Q3

REPORT INFORMATION
  Report Type: Spontaneous
  Country: US (occurrence: US)
  Receive Date: 20240618
  Receipt Date: 20240912
  Transmission Date: 20241017
  Serious: No
  Sender: PFIZER
  Company Number: US-PFIZER INC-PV202400072393

PATIENT

DRUGS (1)
  1. GENOTROPIN [Suspect]
     Active Substance: SOMATROPIN
     Dosage: 1.4 MG AND 1.6 MG EVERY OTHER DAY, USE WITHIN 28 DAYS AFTER INITIAL INJECTION
     Route: 058

REACTIONS (1)
  - Device leakage [Unknown]
